FAERS Safety Report 5034499-7 (Version None)
Quarter: 2006Q2

REPORT INFORMATION
  Report Type: 
  Country: None (occurrence: None)
  Receive Date: 20060622
  Receipt Date: 20060622
  Transmission Date: 20061013
  Serious: Yes (Hospitalization)
  Sender: FDA-Public Use
  Company Number: None

PATIENT
  Sex: Male
  Weight: 76.4 kg

DRUGS (7)
  1. UROXATRAL [Suspect]
     Indication: BENIGN PROSTATIC HYPERPLASIA
     Dosage: 10 MG DAILY (ONCE) ORAL
     Route: 048
     Dates: start: 20060614, end: 20060616
  2. CARDIZEM CD [Suspect]
     Indication: HYPERTENSION
     Dosage: 240 MG ONCE DAILY ORAL
     Route: 048
  3. ASPIRIN [Concomitant]
  4. WELLBUTRIN XL [Concomitant]
  5. VYTROIN [Concomitant]
  6. ENALAPRILAT [Concomitant]
  7. PAXIL [Concomitant]

REACTIONS (6)
  - BACTERAEMIA [None]
  - DEHYDRATION [None]
  - DRUG INTERACTION [None]
  - HYPOTENSION [None]
  - MYALGIA [None]
  - SYNCOPE [None]
